FAERS Safety Report 4283832-2 (Version None)
Quarter: 2004Q1

REPORT INFORMATION
  Report Type: 
  Country: None (occurrence: None)
  Receive Date: 20040130
  Receipt Date: 20040119
  Transmission Date: 20041129
  Serious: Yes (Other)
  Sender: FDA-Public Use
  Company Number: US-JNJFOC-20031005555

PATIENT
  Age: 59 Year
  Sex: Female
  Weight: 97.5234 kg

DRUGS (14)
  1. REMICADE [Suspect]
     Indication: RHEUMATOID ARTHRITIS
     Dosage: SEE IMAGE, INTRAVENOUS
     Route: 042
     Dates: start: 20020710
  2. REMICADE [Suspect]
     Indication: RHEUMATOID ARTHRITIS
     Dosage: SEE IMAGE, INTRAVENOUS
     Route: 042
     Dates: start: 20030429
  3. REMICADE [Suspect]
     Indication: RHEUMATOID ARTHRITIS
     Dosage: SEE IMAGE, INTRAVENOUS
     Route: 042
     Dates: start: 20030919
  4. RELAFEN [Concomitant]
  5. FOLIC ACID [Concomitant]
  6. HYDROCHLOROTHIAZIDE [Concomitant]
  7. INDERNAL (PROPRANOLOL HYDROCHLORIDE [Concomitant]
  8. VICODIN [Concomitant]
  9. MULTIVITAMIN [Concomitant]
  10. B-12 (CYANOCOBALAMIN) [Concomitant]
  11. GLUCOSAMINE CHONDROITIN (GLUCOSAMINE W/CHONDROITIN SULFATES) [Concomitant]
  12. CITROCAL (CALCIUM CITRATE) [Concomitant]
  13. PROTONIX [Concomitant]
  14. FISH OIL (FISIH OIL) [Concomitant]

REACTIONS (1)
  - PEMPHIGOID [None]
